FAERS Safety Report 9624995 (Version 1)
Quarter: 2013Q4

REPORT INFORMATION
  Report Type: Spontaneous
  Country: PT (occurrence: PT)
  Receive Date: 20131016
  Receipt Date: 20131016
  Transmission Date: 20140711
  Serious: Yes (Hospitalization, Other)
  Sender: FDA-Public Use
  Company Number: PHHY2013PT111299

PATIENT
  Age: 75 Year
  Sex: Male

DRUGS (7)
  1. BROMOCRIPTINE [Suspect]
     Dosage: 30 MG, DAILY
  2. METHYSERGIDE MALEATE [Suspect]
     Dosage: UNK UKN, UNK
  3. ERGOTAMINE [Suspect]
  4. TAMSULOSIN [Concomitant]
     Dosage: 0.4 MG, DAILY
  5. LEVODOPA/CARBIDOPA [Concomitant]
     Dosage: 1 DF, QID ((250/25MG)
  6. AMANTADINE [Concomitant]
     Dosage: 100 MG, BID
  7. ALPRAZOLAM [Concomitant]
     Dosage: 2.5 MG, DAILY

REACTIONS (8)
  - Acute pulmonary oedema [Recovered/Resolved]
  - Oxygen saturation decreased [Unknown]
  - Pleuritic pain [Unknown]
  - Dyspnoea [Unknown]
  - Syncope [Unknown]
  - Respiratory distress [Unknown]
  - Pleural effusion [Recovered/Resolved]
  - Pulmonary fibrosis [Unknown]
